FAERS Safety Report 6353589 (Version 4)
Quarter: 2017Q3

REPORT INFORMATION
  Report Type: Spontaneous
  Country: US (occurrence: US)
  Receive Date: 20061023
  Receipt Date: 20170925
  Transmission Date: 20171128
  Serious: Yes (Hospitalization, Other)
  Sender: FDA-Public Use
  Company Number: US-PFIZER INC-2006126976

PATIENT
  Age: 52 Year
  Sex: Female
  Weight: 52 kg

DRUGS (5)
  1. CELEBREX [Suspect]
     Active Substance: CELECOXIB
     Indication: ARTHRITIS
     Dosage: 100 MG, 2X/DAY
     Route: 048
     Dates: start: 19990301, end: 19990331
  2. CELEBREX [Suspect]
     Active Substance: CELECOXIB
     Dosage: 200 MG, 1X/DAY
     Route: 048
     Dates: start: 19990101, end: 19991001
  3. VIOXX [Suspect]
     Active Substance: ROFECOXIB
     Indication: ARTHRITIS
     Dosage: 25 MG, 1X/DAY
     Route: 048
     Dates: start: 19990601, end: 20011231
  4. VIOXX [Suspect]
     Active Substance: ROFECOXIB
     Indication: OSTEOARTHRITIS
  5. VIOXX [Suspect]
     Active Substance: ROFECOXIB
     Indication: RHEUMATOID ARTHRITIS

REACTIONS (2)
  - Ischaemic stroke [Unknown]
  - Depression [Unknown]

NARRATIVE: CASE EVENT DATE: 20000101
